FAERS Safety Report 13923200 (Version 1)
Quarter: 2017Q3

REPORT INFORMATION
  Report Type: Spontaneous
  Country: US (occurrence: None)
  Receive Date: 20170830
  Receipt Date: 20170830
  Transmission Date: 20171127
  Serious: Yes (Hospitalization)
  Sender: FDA-Public Use
  Company Number: None

PATIENT
  Age: 66 Year
  Sex: Male
  Weight: 96.16 kg

DRUGS (1)
  1. HEPARIN [Suspect]
     Active Substance: HEPARIN SODIUM
     Indication: TRANSIENT ISCHAEMIC ATTACK
     Route: 042
     Dates: start: 20170821, end: 20170822

REACTIONS (2)
  - Haemorrhage [None]
  - Haematemesis [None]

NARRATIVE: CASE EVENT DATE: 20170821
